FAERS Safety Report 25532658 (Version 1)
Quarter: 2025Q3

REPORT INFORMATION
  Report Type: Spontaneous
  Country: CN (occurrence: CN)
  Receive Date: 20250709
  Receipt Date: 20250709
  Transmission Date: 20251020
  Serious: Yes (Other)
  Sender: BAXTER
  Company Number: None

PATIENT
  Age: 53 Year
  Sex: Female
  Weight: 49 kg

DRUGS (2)
  1. CYCLOPHOSPHAMIDE [Suspect]
     Active Substance: CYCLOPHOSPHAMIDE
     Indication: Breast cancer female
     Dosage: 0.8 G, QD
     Route: 041
     Dates: start: 20250625, end: 20250625
  2. SODIUM CHLORIDE [Suspect]
     Active Substance: SODIUM CHLORIDE
     Dosage: 100 ML, QD WITH CYCLOPHOSPHAMIDE
     Route: 041
     Dates: start: 20250625, end: 20250625

REACTIONS (6)
  - Gastrooesophageal reflux disease [Recovering/Resolving]
  - Chest discomfort [Recovering/Resolving]
  - Dizziness [Recovering/Resolving]
  - Palpitations [Recovering/Resolving]
  - Nausea [Recovering/Resolving]
  - Pruritus [Recovering/Resolving]

NARRATIVE: CASE EVENT DATE: 20250625
